FAERS Safety Report 5106631-8 (Version None)
Quarter: 2006Q3

REPORT INFORMATION
  Report Type: 
  Country: None (occurrence: None)
  Receive Date: 20060918
  Receipt Date: 20060908
  Transmission Date: 20061208
  Serious: Yes (Hospitalization)
  Sender: FDA-Public Use
  Company Number: 2006UW17752

PATIENT
  Age: 29 Year
  Sex: Male

DRUGS (4)
  1. SEROQUEL [Suspect]
     Route: 048
  2. SEROQUEL [Suspect]
     Route: 048
     Dates: start: 20060401
  3. STRATTERA [Suspect]
  4. STRATTERA [Suspect]

REACTIONS (5)
  - ACCIDENTAL OVERDOSE [None]
  - AGITATION [None]
  - DYSARTHRIA [None]
  - MEDICATION ERROR [None]
  - SOMNOLENCE [None]
